FAERS Safety Report 16919626 (Version 1)
Quarter: 2019Q4

REPORT INFORMATION
  Report Type: Report from Study
  Country: DE (occurrence: DE)
  Receive Date: 20191015
  Receipt Date: 20191015
  Transmission Date: 20200122
  Serious: Yes (Hospitalization)
  Sender: FDA-Public Use
  Company Number: DE-ELI_LILLY_AND_COMPANY-DE201910003805

PATIENT
  Age: 74 Year
  Sex: Female

DRUGS (2)
  1. ZOLPIDEM [Suspect]
     Active Substance: ZOLPIDEM TARTRATE
     Indication: SLEEP DISORDER
     Dosage: 0.5 DOSAGE FORM, UNKNOWN
     Route: 065
  2. TERIPARATIDE [Suspect]
     Active Substance: TERIPARATIDE
     Indication: OSTEOPOROSIS
     Dosage: UNK UNK, DAILY
     Route: 058
     Dates: start: 20190101

REACTIONS (11)
  - Cardiac output decreased [Recovering/Resolving]
  - Contusion [Unknown]
  - Contusion [Unknown]
  - Head injury [Unknown]
  - Faeces discoloured [Unknown]
  - Fall [Unknown]
  - Arrhythmia [Recovering/Resolving]
  - Fall [Unknown]
  - Pain in extremity [Unknown]
  - Haematemesis [Unknown]
  - Gastrointestinal haemorrhage [Unknown]

NARRATIVE: CASE EVENT DATE: 201908
